FAERS Safety Report 6097703-2 (Version None)
Quarter: 2009Q1

REPORT INFORMATION
  Report Type: 
  Country: None (occurrence: None)
  Receive Date: 20090227
  Receipt Date: 20090127
  Transmission Date: 20090719
  Serious: No
  Sender: FDA-Public Use
  Company Number: US-BAYER-200910316BCC

PATIENT
  Age: 86 Year
  Sex: Female
  Weight: 93 kg

DRUGS (22)
  1. ALEVE [Suspect]
     Indication: ARTHRALGIA
     Dosage: TOTAL DAILY DOSE: 220 MG  UNIT DOSE: 220 MG
     Route: 048
     Dates: start: 20090126
  2. MULTIVITAMIN WITH IRON [Concomitant]
  3. FISH OIL [Concomitant]
  4. PRILOSEC [Concomitant]
  5. VITAMIN D [Concomitant]
  6. CALTRATE + D [Concomitant]
  7. LASIX [Concomitant]
  8. KLOR-CON [Concomitant]
  9. HUMULIN N-U INSULIN [Concomitant]
  10. LIPITOR [Concomitant]
  11. QUINAPRIL [Concomitant]
  12. NEURONTIN [Concomitant]
  13. WELCHOL [Concomitant]
  14. ASPIRIN [Concomitant]
  15. BENEFIBER [Concomitant]
  16. SKELAXIN [Concomitant]
  17. DARVOCET-N 100 [Concomitant]
  18. FIORICET [Concomitant]
  19. EYE DROPS [Concomitant]
  20. ELIDEL [Concomitant]
  21. DIPROLENE [Concomitant]
  22. DOVONEX [Concomitant]

REACTIONS (3)
  - CHEST DISCOMFORT [None]
  - MUSCLE TIGHTNESS [None]
  - RESPIRATION ABNORMAL [None]
